FAERS Safety Report 10492665 (Version 1)
Quarter: 2014Q4

REPORT INFORMATION
  Report Type: Spontaneous
  Country: US (occurrence: US)
  Receive Date: 20141002
  Receipt Date: 20141002
  Transmission Date: 20150528
  Serious: No
  Sender: FDA-Public Use
  Company Number: US-GLAXOSMITHKLINE-A1073799A

PATIENT
  Sex: Male
  Weight: 72.7 kg

DRUGS (5)
  1. ALBUTEROL. [Concomitant]
     Active Substance: ALBUTEROL
  2. ADVAIR HFA [Suspect]
     Active Substance: FLUTICASONE PROPIONATE\SALMETEROL XINAFOATE
     Indication: PRODUCT USED FOR UNKNOWN INDICATION
     Route: 065
  3. DOXYCYCLINE. [Concomitant]
     Active Substance: DOXYCYCLINE
  4. TRAMADOL [Concomitant]
     Active Substance: TRAMADOL
  5. NAPROXEN. [Concomitant]
     Active Substance: NAPROXEN

REACTIONS (8)
  - Asthenia [Unknown]
  - Vomiting [Unknown]
  - Sleep disorder [Unknown]
  - Chest pain [Unknown]
  - Nausea [Unknown]
  - Pollakiuria [Unknown]
  - Lung disorder [Unknown]
  - Dyspnoea [Unknown]

NARRATIVE: CASE EVENT DATE: 2012
